FAERS Safety Report 9752506 (Version 2)
Quarter: 2014Q1

REPORT INFORMATION
  Report Type: Spontaneous
  Country: AU (occurrence: AU)
  Receive Date: 20131213
  Receipt Date: 20140221
  Transmission Date: 20141002
  Serious: Yes (Other)
  Sender: FDA-Public Use
  Company Number: AU-009507513-1312AUS005364

PATIENT
  Age: 61 Year
  Sex: Male

DRUGS (1)
  1. VYTORIN [Suspect]
     Dosage: 10/10
     Route: 048

REACTIONS (2)
  - Pancytopenia [Unknown]
  - Therapeutic response unexpected [Unknown]
